FAERS Safety Report 6595072-2 (Version None)
Quarter: 2010Q1

REPORT INFORMATION
  Report Type: 
  Country: None (occurrence: None)
  Receive Date: 20100212
  Receipt Date: 20100204
  Transmission Date: 20100710
  Serious: No
  Sender: FDA-Public Use
  Company Number: 2010SP003671

PATIENT
  Sex: Female

DRUGS (2)
  1. REMERON [Suspect]
     Indication: DRUG USE FOR UNKNOWN INDICATION
  2. CIPRALEX (CON.) [Concomitant]

REACTIONS (4)
  - EOSINOPHILIA [None]
  - NASOPHARYNGITIS [None]
  - OEDEMA [None]
  - THYROID MASS [None]
